FAERS Safety Report 10344911 (Version 1)
Quarter: 2014Q3

REPORT INFORMATION
  Report Type: Spontaneous
  Country: US (occurrence: US)
  Receive Date: 20140728
  Receipt Date: 20140728
  Transmission Date: 20150326
  Serious: No
  Sender: FDA-Public Use
  Company Number: US-PFIZER INC-2014207225

PATIENT
  Sex: Female

DRUGS (1)
  1. NORPACE [Suspect]
     Active Substance: DISOPYRAMIDE PHOSPHATE
     Dosage: 300 MG, 2X/DAY (150MG 2 PILLS TWICE A DAY)
     Route: 048

REACTIONS (2)
  - Parosmia [Unknown]
  - Dysgeusia [Unknown]
